FAERS Safety Report 24274965 (Version 1)
Quarter: 2024Q3

REPORT INFORMATION
  Report Type: Spontaneous
  Country: US (occurrence: US)
  Receive Date: 20240902
  Receipt Date: 20240902
  Transmission Date: 20241017
  Serious: Yes (Other)
  Sender: DR REDDYS
  Company Number: US-DRL-USA-SPO/USA/24/0012561

PATIENT
  Age: 63 Year
  Sex: Male

DRUGS (6)
  1. COLCHICINE [Suspect]
     Active Substance: COLCHICINE
     Indication: Pericarditis constrictive
  2. IBUPROFEN [Suspect]
     Active Substance: IBUPROFEN
     Indication: Pericarditis constrictive
  3. ANAKINRA [Concomitant]
     Active Substance: ANAKINRA
     Indication: Pericarditis constrictive
  4. RILONACEPT [Concomitant]
     Active Substance: RILONACEPT
     Indication: Pericarditis constrictive
  5. TORSEMIDE [Concomitant]
     Active Substance: TORSEMIDE
     Indication: Pericarditis constrictive
  6. PREDNISONE [Concomitant]
     Active Substance: PREDNISONE
     Indication: Pericarditis constrictive

REACTIONS (2)
  - Drug ineffective for unapproved indication [Unknown]
  - Condition aggravated [Unknown]
